FAERS Safety Report 14260120 (Version 3)
Quarter: 2020Q3

REPORT INFORMATION
  Report Type: Spontaneous
  Country: US (occurrence: US)
  Receive Date: 20171207
  Receipt Date: 20200826
  Transmission Date: 20201102
  Serious: Yes (Other)
  Sender: FDA-Public Use
  Company Number: US-ASTRAZENECA-2017SF22063

PATIENT
  Age: 20269 Day
  Sex: Female
  Weight: 73.9 kg

DRUGS (30)
  1. FUROSEMIDE. [Concomitant]
     Active Substance: FUROSEMIDE
     Dates: start: 20150717
  2. BENADRYL [Concomitant]
     Active Substance: DIPHENHYDRAMINE HYDROCHLORIDE
     Dates: start: 20150717
  3. LORATADINE. [Concomitant]
     Active Substance: LORATADINE
  4. SUMATRIPTAN. [Concomitant]
     Active Substance: SUMATRIPTAN
  5. FOSAMAX [Concomitant]
     Active Substance: ALENDRONATE SODIUM
     Dates: start: 20150717
  6. LISINOPRIL. [Concomitant]
     Active Substance: LISINOPRIL
     Dates: start: 20150717
  7. BENZONATATE. [Concomitant]
     Active Substance: BENZONATATE
  8. PRAVACHOL [Concomitant]
     Active Substance: PRAVASTATIN SODIUM
  9. HYDROCORTISONE. [Concomitant]
     Active Substance: HYDROCORTISONE
  10. NEXIUM [Suspect]
     Active Substance: ESOMEPRAZOLE MAGNESIUM
     Indication: GASTROOESOPHAGEAL REFLUX DISEASE
     Route: 048
     Dates: start: 20140121
  11. NITROGLYCERIN. [Concomitant]
     Active Substance: NITROGLYCERIN
     Dates: start: 20150717
  12. CYANOCOBALAMIN. [Concomitant]
     Active Substance: CYANOCOBALAMIN
     Dates: start: 20161118
  13. ZANTAC [Concomitant]
     Active Substance: RANITIDINE HYDROCHLORIDE
     Dates: start: 2016, end: 2018
  14. PROMETHAZINE [Concomitant]
     Active Substance: PROMETHAZINE HYDROCHLORIDE
  15. CLOTRIMAZOLE. [Concomitant]
     Active Substance: CLOTRIMAZOLE
  16. PROTONIX [Suspect]
     Active Substance: PANTOPRAZOLE SODIUM
     Indication: GASTROOESOPHAGEAL REFLUX DISEASE
     Route: 065
  17. RANITIDINE. [Concomitant]
     Active Substance: RANITIDINE
     Dates: start: 2016, end: 2018
  18. SPIRIVA [Concomitant]
     Active Substance: TIOTROPIUM BROMIDE MONOHYDRATE
  19. NEXIUM [Suspect]
     Active Substance: ESOMEPRAZOLE MAGNESIUM
     Indication: GASTROOESOPHAGEAL REFLUX DISEASE
     Route: 048
     Dates: start: 2014, end: 2015
  20. GUAIFENESIN. [Concomitant]
     Active Substance: GUAIFENESIN
     Dates: start: 20150717
  21. NYSTATIN. [Concomitant]
     Active Substance: NYSTATIN
  22. ALBUTEROL. [Concomitant]
     Active Substance: ALBUTEROL
     Dates: start: 20150717
  23. MAALOX ANTACID [Concomitant]
     Active Substance: ALUMINUM HYDROXIDE\DIMETHICONE\MAGNESIUM HYDROXIDE
  24. PREMARIN [Concomitant]
     Active Substance: ESTROGENS, CONJUGATED
  25. LANSOPRAZOLE. [Suspect]
     Active Substance: LANSOPRAZOLE
     Indication: GASTROOESOPHAGEAL REFLUX DISEASE
     Route: 065
  26. GABAPENTIN. [Concomitant]
     Active Substance: GABAPENTIN
     Dates: start: 20150717
  27. MILK OF MAGNESIA [Concomitant]
     Active Substance: MAGNESIUM HYDROXIDE
  28. ANUSOL NOS [Concomitant]
     Active Substance: BALSAM PERU\BENZYL BENZOATE\BISMUTH HYDROXIDE\BISMUTH SUBGALLATE\HYDROCORTISONE ACETATE\ZINC OXIDE
  29. SIMETHICONE (DIMETHICONE) [Concomitant]
     Active Substance: DIMETHICONE
  30. ATENOLOL. [Concomitant]
     Active Substance: ATENOLOL
     Dates: start: 20150717

REACTIONS (3)
  - Acute kidney injury [Unknown]
  - Renal failure [Not Recovered/Not Resolved]
  - Chronic kidney disease [Unknown]

NARRATIVE: CASE EVENT DATE: 20150701
